FAERS Safety Report 8769503 (Version 1)
Quarter: 2012Q4

REPORT INFORMATION
  Report Type: 
  Country: EC (occurrence: EC)
  Receive Date: 20120905
  Receipt Date: 20120905
  Transmission Date: 20130627
  Serious: Yes (Hospitalization)
  Sender: FDA-Public Use
  Company Number: PHHY2012EC076675

PATIENT
  Age: 39 Year
  Sex: Female

DRUGS (1)
  1. TEGRETOL CR [Suspect]
     Indication: EPILEPSY
     Dosage: 1 DF, Daily
     Route: 048
     Dates: start: 20110314

REACTIONS (3)
  - Appendicitis [Recovered/Resolved]
  - Abdominal pain [Recovered/Resolved]
  - Chest pain [Recovered/Resolved]
